FAERS Safety Report 6412844-5 (Version None)
Quarter: 2009Q4

REPORT INFORMATION
  Report Type: 
  Country: None (occurrence: None)
  Receive Date: 20091023
  Receipt Date: 20091017
  Transmission Date: 20100525
  Serious: Yes (Death, Hospitalization)
  Sender: FDA-Public Use
  Company Number: US-CELGENEUS-163-21880-09101446

PATIENT
  Sex: Female
  Weight: 68 kg

DRUGS (1)
  1. REVLIMID [Suspect]
     Route: 048
     Dates: start: 20090918, end: 20090924

REACTIONS (1)
  - FEBRILE NEUTROPENIA [None]
